FAERS Safety Report 20354437 (Version 1)
Quarter: 2022Q1

REPORT INFORMATION
  Report Type: Spontaneous
  Country: US (occurrence: US)
  Receive Date: 20220120
  Receipt Date: 20220120
  Transmission Date: 20220423
  Serious: Yes (Other)
  Sender: FDA-Public Use
  Company Number: US-drreddys-SPO/USA/22/0145824

PATIENT
  Age: 13 Year
  Sex: Female
  Weight: 40.5 kg

DRUGS (5)
  1. ZIPRASIDONE [Suspect]
     Active Substance: ZIPRASIDONE
     Indication: Obsessive-compulsive disorder
     Dosage: FOR ONE WEEK
     Dates: start: 202108
  2. ZIPRASIDONE [Suspect]
     Active Substance: ZIPRASIDONE
     Indication: Behaviour disorder
     Dates: start: 202108
  3. ZIPRASIDONE [Suspect]
     Active Substance: ZIPRASIDONE
     Dosage: 60 MG DAILY (1 20 MG TABLET AND 1 40 MG TABLET)
     Dates: start: 202108, end: 20220107
  4. ZIPRASIDONE [Suspect]
     Active Substance: ZIPRASIDONE
     Dosage: TITRATED DOWN TO 40 MG
  5. OXCARBAZEPINE [Suspect]
     Active Substance: OXCARBAZEPINE
     Indication: Product used for unknown indication

REACTIONS (10)
  - Hallucination [Recovering/Resolving]
  - Tardive dyskinesia [Recovering/Resolving]
  - Psychotic disorder [Recovering/Resolving]
  - Decreased appetite [Recovering/Resolving]
  - Fatigue [Recovering/Resolving]
  - Mood altered [Recovering/Resolving]
  - Mydriasis [Recovering/Resolving]
  - Visual impairment [Recovering/Resolving]
  - Abnormal behaviour [Recovering/Resolving]
  - Product use in unapproved indication [Unknown]
